FAERS Safety Report 8796907 (Version 1)
Quarter: 2012Q4

REPORT INFORMATION
  Report Type: 
  Country: US (occurrence: US)
  Receive Date: 20120920
  Receipt Date: 20120920
  Transmission Date: 20130627
  Serious: Yes (Other)
  Sender: FDA-Public Use
  Company Number: PHEH2012US017995

PATIENT
  Sex: Female

DRUGS (4)
  1. DIOVAN [Suspect]
     Indication: HYPERTENSION
     Dosage: 320 mg daily
     Route: 048
  2. TOPROL XL [Concomitant]
     Indication: BLOOD PRESSURE
     Dosage: UNK
  3. XANAX [Concomitant]
     Indication: ANXIETY
     Dosage: UNK
  4. PROPANOLOL [Concomitant]
     Indication: HEART RATE IRREGULAR
     Dosage: UNK

REACTIONS (1)
  - Bladder prolapse [Unknown]
